FAERS Safety Report 5225680-2 (Version None)
Quarter: 2007Q1

REPORT INFORMATION
  Report Type: 
  Country: None (occurrence: None)
  Receive Date: 20061201
  Receipt Date: 20061026
  Transmission Date: 20070707
  Serious: No
  Sender: FDA-Public Use
  Company Number: US200610005063

PATIENT
  Age: 63 Year
  Sex: Female

DRUGS (3)
  1. CYMBALTA [Suspect]
     Indication: STRESS
     Dosage: 30 MG, ORAL
     Route: 048
     Dates: start: 20061025
  2. GLUCOPHAGE ^UNS^ (METFORMIN HYDROCHLORIDE) [Concomitant]
  3. GLUCOTROL [Concomitant]

REACTIONS (6)
  - DRY MOUTH [None]
  - FEELING ABNORMAL [None]
  - HEART RATE INCREASED [None]
  - INSOMNIA [None]
  - NAUSEA [None]
  - PSYCHOMOTOR HYPERACTIVITY [None]
